FAERS Safety Report 23666963 (Version 2)
Quarter: 2024Q3

REPORT INFORMATION
  Report Type: Spontaneous
  Country: AU (occurrence: AU)
  Receive Date: 20240325
  Receipt Date: 20240730
  Transmission Date: 20241016
  Serious: Yes (Other)
  Sender: AMGEN
  Company Number: AU-AMGEN-AUSSP2024056026

PATIENT
  Age: 59 Year
  Sex: Male

DRUGS (8)
  1. REPATHA [Suspect]
     Active Substance: EVOLOCUMAB
     Indication: Blood cholesterol abnormal
     Dosage: 420 MILLIGRAM/3.5 ML, QMO
     Route: 058
     Dates: start: 202401
  2. Amcal [Concomitant]
     Indication: Product used for unknown indication
  3. AVAPRO [Concomitant]
     Active Substance: IRBESARTAN
     Indication: Product used for unknown indication
     Dosage: 300 MILLIGRAM/ 25 MILLIGRAM
  4. CORDILOX [Concomitant]
     Indication: Product used for unknown indication
     Dosage: 240 MILLIGRAM
  5. CORDILOX [Concomitant]
     Dosage: 240 MILLIGRAM
  6. CORDILOX [Concomitant]
     Dosage: 240 MILLIGRAM
  7. EMPAGLIFLOZIN\METFORMIN HYDROCHLORIDE [Concomitant]
     Active Substance: EMPAGLIFLOZIN\METFORMIN HYDROCHLORIDE
     Indication: Diabetes mellitus
     Dosage: 5 MILLIGRAM, 100 MILLIGRAM
  8. OZEMPIC [Concomitant]
     Active Substance: SEMAGLUTIDE
     Indication: Diabetes mellitus
     Dosage: 1 MILLIGRAM, QWK

REACTIONS (4)
  - Umbilical hernia [Unknown]
  - Drug dose omission by device [Unknown]
  - Product communication issue [Unknown]
  - Device use error [Unknown]

NARRATIVE: CASE EVENT DATE: 20240316
